FAERS Safety Report 6852386-6 (Version None)
Quarter: 2010Q3

REPORT INFORMATION
  Report Type: 
  Country: None (occurrence: None)
  Receive Date: 20100717
  Receipt Date: 20071114
  Transmission Date: 20110219
  Serious: No
  Sender: FDA-Public Use
  Company Number: US-PFIZER INC-2007097115

PATIENT
  Age: 30 Year
  Sex: Female
  Weight: 63.5 kg

DRUGS (2)
  1. CHANTIX [Suspect]
     Indication: SMOKING CESSATION THERAPY
     Dates: start: 20070101
  2. ORAL CONTRACEPTIVE NOS [Concomitant]

REACTIONS (7)
  - AGITATION [None]
  - INAPPROPRIATE AFFECT [None]
  - IRRITABILITY [None]
  - MOOD SWINGS [None]
  - NERVOUSNESS [None]
  - PERSONALITY CHANGE [None]
  - UNEVALUABLE EVENT [None]
